FAERS Safety Report 6617377-9 (Version None)
Quarter: 2010Q1

REPORT INFORMATION
  Report Type: 
  Country: None (occurrence: None)
  Receive Date: 20100307
  Receipt Date: 20100217
  Transmission Date: 20100710
  Serious: Yes (Other)
  Sender: FDA-Public Use
  Company Number: US-BAYER-201010206NA

PATIENT
  Sex: Female

DRUGS (8)
  1. MAGNEVIST [Suspect]
     Indication: NUCLEAR MAGNETIC RESONANCE IMAGING
  2. OMNISCAN [Suspect]
     Indication: NUCLEAR MAGNETIC RESONANCE IMAGING
     Dates: start: 20030604, end: 20030604
  3. OMNISCAN [Suspect]
     Dates: start: 20040920, end: 20040920
  4. OMNISCAN [Suspect]
     Dates: start: 20050124, end: 20050124
  5. OMNISCAN [Suspect]
     Dates: start: 20050222, end: 20050222
  6. OPTIMARK [Suspect]
     Indication: NUCLEAR MAGNETIC RESONANCE IMAGING
  7. MULTIHANCE [Suspect]
     Indication: NUCLEAR MAGNETIC RESONANCE IMAGING
  8. PROHANCE [Suspect]
     Indication: NUCLEAR MAGNETIC RESONANCE IMAGING

REACTIONS (5)
  - NEPHROGENIC SYSTEMIC FIBROSIS [None]
  - PAIN [None]
  - SKIN DISORDER [None]
  - SKIN INDURATION [None]
  - SKIN TIGHTNESS [None]
